FAERS Safety Report 8430410-7 (Version None)
Quarter: 2012Q2

REPORT INFORMATION
  Report Type: 
  Country: None (occurrence: None)
  Receive Date: 20120612
  Receipt Date: 20120611
  Transmission Date: 20120825
  Serious: Yes (Other)
  Sender: FDA-Public Use
  Company Number: US-PFIZER INC-2012140175

PATIENT
  Sex: Female
  Weight: 68.027 kg

DRUGS (5)
  1. FUROSEMIDE [Concomitant]
     Dosage: 40 MG
  2. LYRICA [Suspect]
     Indication: CARPAL TUNNEL DECOMPRESSION
     Dosage: 50 MG, 3X/DAY
     Route: 048
     Dates: start: 20120301
  3. DIOVAN [Concomitant]
     Indication: HYPERTENSION
     Dosage: 160 MG, 1X/DAY
  4. PROCARDIA [Concomitant]
     Indication: HYPERTENSION
     Dosage: 60 MG, 1X/DAY
  5. ISOSORBIDE [Concomitant]
     Indication: HYPERTENSION
     Dosage: 60 MG, 1X/DAY

REACTIONS (1)
  - GOITRE [None]
